FAERS Safety Report 8797015 (Version 1)
Quarter: 2012Q4

REPORT INFORMATION
  Report Type: 
  Country: US (occurrence: US)
  Receive Date: 20120919
  Receipt Date: 20120919
  Transmission Date: 20130627
  Serious: Yes (Other)
  Sender: FDA-Public Use
  Company Number: US-GLAXOSMITHKLINE-A0993285A

PATIENT
  Age: 34 Year
  Sex: Male

DRUGS (3)
  1. POTIGA [Suspect]
     Indication: CONVULSION
     Dosage: 200MG per day
     Route: 048
     Dates: start: 20120604
  2. DILANTIN [Concomitant]
  3. VIMPAT [Concomitant]

REACTIONS (3)
  - Convulsion [Not Recovered/Not Resolved]
  - Somnolence [Not Recovered/Not Resolved]
  - Fall [Unknown]
